FAERS Safety Report 7939486-4 (Version None)
Quarter: 2011Q4

REPORT INFORMATION
  Report Type: 
  Country: None (occurrence: None)
  Receive Date: 20111125
  Receipt Date: 20111116
  Transmission Date: 20120403
  Serious: Yes (Other)
  Sender: FDA-Public Use
  Company Number: US-BAYER-2011-066527

PATIENT
  Age: 15 Year
  Sex: Female
  Weight: 65.76 kg

DRUGS (5)
  1. YAZ [Suspect]
     Indication: CONTRACEPTION
     Dosage: UNK
     Dates: start: 20080801, end: 20091001
  2. YAZ [Suspect]
     Indication: PREMENSTRUAL SYNDROME
  3. HUMALOG [Concomitant]
     Indication: DIABETES MELLITUS
     Dosage: 100 U/ML, UNK
     Dates: start: 20010101
  4. LOESTRIN FE 1/20 [Concomitant]
     Dosage: UNK
     Dates: start: 20100203
  5. NOVOLOG [Concomitant]
     Indication: DIABETES MELLITUS
     Dosage: 100 U/ML, UNK
     Dates: start: 20010101

REACTIONS (7)
  - INJURY [None]
  - GALLBLADDER INJURY [None]
  - ANXIETY [None]
  - GENERAL PHYSICAL HEALTH DETERIORATION [None]
  - EMOTIONAL DISTRESS [None]
  - PAIN [None]
  - CHOLECYSTITIS CHRONIC [None]
